FAERS Safety Report 5291255-2 (Version None)
Quarter: 2007Q2

REPORT INFORMATION
  Report Type: 
  Country: None (occurrence: None)
  Receive Date: 20070409
  Receipt Date: 20060622
  Transmission Date: 20071010
  Serious: Yes (Other)
  Sender: FDA-Public Use
  Company Number: US-PFIZER INC-2007025185

PATIENT

DRUGS (1)
  1. LIPITOR [Suspect]
     Dosage: DAILY DOSE:20MG

REACTIONS (1)
  - CEREBROVASCULAR ACCIDENT [None]
